FAERS Safety Report 26056497 (Version 1)
Quarter: 2025Q4

REPORT INFORMATION
  Report Type: Spontaneous
  Country: CA (occurrence: CA)
  Receive Date: 20251118
  Receipt Date: 20251118
  Transmission Date: 20260118
  Serious: Yes (Hospitalization)
  Sender: TEVA
  Company Number: CA-TEVA-VS-3392745

PATIENT
  Age: 12 Year
  Sex: Female

DRUGS (3)
  1. ETOPOSIDE [Suspect]
     Active Substance: ETOPOSIDE
     Indication: Ewing^s sarcoma recurrent
     Dosage: DOSE : 112.0 , DOSE FORM : NOT SPECIFIED
     Route: 065
  2. CARBOPLATIN [Suspect]
     Active Substance: CARBOPLATIN
     Indication: Ewing^s sarcoma recurrent
     Dosage: DOSE FORM :SOLUTION INTRAVENOUS , DOSE : 440.0
     Route: 065
  3. IFOSFAMIDE [Suspect]
     Active Substance: IFOSFAMIDE
     Indication: Ewing^s sarcoma recurrent
     Dosage: DOSE : 2000.0 , IFOSFAMIDE FOR INJECTION, USP , DOSE FORM : POWDER FOR SOLUTION INTRAVENOUS
     Route: 065

REACTIONS (3)
  - Neutropenia [Recovering/Resolving]
  - Oropharyngeal pain [Recovering/Resolving]
  - Pyrexia [Recovering/Resolving]
